FAERS Safety Report 4458432-1 (Version None)
Quarter: 2004Q3

REPORT INFORMATION
  Report Type: 
  Country: None (occurrence: None)
  Receive Date: 20040922
  Receipt Date: 20040909
  Transmission Date: 20050211
  Serious: No
  Sender: FDA-Public Use
  Company Number: 04P-008-0272885-00

PATIENT

DRUGS (1)
  1. VALPROATE SODIUM [Suspect]
     Indication: PETIT MAL EPILEPSY

REACTIONS (2)
  - CONDITION AGGRAVATED [None]
  - CONVULSION [None]
